FAERS Safety Report 18894168 (Version 1)
Quarter: 2021Q1

REPORT INFORMATION
  Report Type: Spontaneous
  Country: US (occurrence: US)
  Receive Date: 20210215
  Receipt Date: 20210215
  Transmission Date: 20210420
  Serious: No
  Sender: FDA-Public Use
  Company Number: US-SA-2021SA048910

PATIENT
  Age: 16 Year
  Sex: Female

DRUGS (2)
  1. FABRAZYME [Suspect]
     Active Substance: AGALSIDASE BETA
     Dosage: 20 MG (STRENGTH: 5 MG), QOW
     Route: 042
  2. FABRAZYME [Suspect]
     Active Substance: AGALSIDASE BETA
     Indication: FABRY^S DISEASE
     Dosage: 35 MG (STRENGTH: 35 MG), QOW
     Route: 042
     Dates: start: 20191106

REACTIONS (2)
  - Pruritus [Unknown]
  - Inappropriate schedule of product administration [Unknown]

NARRATIVE: CASE EVENT DATE: 20210122
